FAERS Safety Report 11885994 (Version 4)
Quarter: 2016Q1

REPORT INFORMATION
  Report Type: Spontaneous
  Country: US (occurrence: US)
  Receive Date: 20160104
  Receipt Date: 20160129
  Transmission Date: 20160526
  Serious: No
  Sender: FDA-Public Use
  Company Number: US-LEO PHARMA-239404

PATIENT
  Age: 82 Year
  Sex: Male

DRUGS (2)
  1. PICATO [Suspect]
     Active Substance: INGENOL MEBUTATE
     Indication: ACTINIC KERATOSIS
     Route: 061
     Dates: start: 20151225, end: 20151227
  2. PICATO [Suspect]
     Active Substance: INGENOL MEBUTATE
     Indication: SOLAR LENTIGO

REACTIONS (10)
  - Application site pain [Recovered/Resolved]
  - Drug administration error [Unknown]
  - Eye swelling [Recovered/Resolved]
  - Application site scab [Recovered/Resolved]
  - Inappropriate schedule of drug administration [Unknown]
  - Swelling [Recovered/Resolved]
  - Eyelid oedema [Recovered/Resolved]
  - Application site erythema [Recovered/Resolved]
  - Application site pain [Recovered/Resolved]
  - Application site exfoliation [Recovered/Resolved]

NARRATIVE: CASE EVENT DATE: 20151225
